FAERS Safety Report 13499010 (Version 1)
Quarter: 2017Q2

REPORT INFORMATION
  Report Type: Spontaneous
  Country: US (occurrence: US)
  Receive Date: 20170429
  Receipt Date: 20170429
  Transmission Date: 20170830
  Serious: No
  Sender: FDA-Public Use
  Company Number: None

PATIENT
  Age: 33 Year
  Sex: Female
  Weight: 90.9 kg

DRUGS (5)
  1. ASTHMANEX INHALER [Concomitant]
  2. CLARTIN TYPE - STORE BRAND ALLERGY MEDICATION [Concomitant]
  3. CIPROFLOXCIN [Suspect]
     Active Substance: CIPROFLOXACIN
     Indication: TOOTH INFECTION
     Dosage: ?          QUANTITY:1 TABLET(S);?
     Route: 048
     Dates: start: 20170424, end: 20170428
  4. PROZAC [Concomitant]
     Active Substance: FLUOXETINE HYDROCHLORIDE
  5. PROAIR INHALER [Concomitant]

REACTIONS (3)
  - Depression [None]
  - Incorrect dose administered [None]
  - Anxiety [None]

NARRATIVE: CASE EVENT DATE: 20170429
